FAERS Safety Report 10593785 (Version 2)
Quarter: 2014Q4

REPORT INFORMATION
  Report Type: Spontaneous
  Country: CH (occurrence: CH)
  Receive Date: 20141119
  Receipt Date: 20141126
  Transmission Date: 20150529
  Serious: Yes (Death, Other)
  Sender: FDA-Public Use
  Company Number: CH-ELI_LILLY_AND_COMPANY-CH201411005206

PATIENT
  Sex: Male

DRUGS (2)
  1. TAXOL W/CARBOPLATIN [Concomitant]
     Indication: CHEMOTHERAPY
     Dosage: UNK, WEEKLY (1/W)
     Dates: start: 20140604, end: 20140731
  2. CYRAMZA [Suspect]
     Active Substance: RAMUCIRUMAB
     Indication: PRODUCT USED FOR UNKNOWN INDICATION
     Dosage: 600 MG, CYCLICAL
     Route: 065
     Dates: start: 20140925, end: 20141023

REACTIONS (3)
  - Malignant neoplasm progression [Fatal]
  - Pneumonia aspiration [Fatal]
  - Gastrointestinal haemorrhage [Unknown]
